FAERS Safety Report 6383764-X (Version None)
Quarter: 2009Q4

REPORT INFORMATION
  Report Type: 
  Country: None (occurrence: None)
  Receive Date: 20091001
  Receipt Date: 20090924
  Transmission Date: 20100525
  Serious: Yes (Death)
  Sender: FDA-Public Use
  Company Number: ES-JNJFOC-20080505184

PATIENT
  Age: 79 Year
  Sex: Male

DRUGS (2)
  1. LEVOFLOXACIN [Suspect]
     Indication: PNEUMONIA STREPTOCOCCAL
     Route: 042
  2. AMOXICILLIN [Concomitant]
     Indication: PNEUMONIA STREPTOCOCCAL
     Route: 042

REACTIONS (2)
  - DRUG INEFFECTIVE [None]
  - PNEUMONIA [None]
